FAERS Safety Report 23768560 (Version 1)
Quarter: 2024Q2

REPORT INFORMATION
  Report Type: Spontaneous
  Country: CN (occurrence: CN)
  Receive Date: 20240422
  Receipt Date: 20240422
  Transmission Date: 20240716
  Serious: Yes (Other)
  Sender: FDA-Public Use
  Company Number: CN-BAYER-2024A058454

PATIENT
  Age: 38 Year
  Sex: Female

DRUGS (11)
  1. MOXIFLOXACIN [Suspect]
     Active Substance: MOXIFLOXACIN
     Indication: Mycobacterium abscessus infection
     Dosage: 0.4 G, QD
     Dates: start: 20221111, end: 20230112
  2. MOXIFLOXACIN [Suspect]
     Active Substance: MOXIFLOXACIN
     Indication: Mycobacterium abscessus infection
     Dosage: 0.4 G, QD
     Dates: start: 20230129, end: 20230907
  3. AZITHROMYCIN [Suspect]
     Active Substance: AZITHROMYCIN
     Indication: Mycobacterium abscessus infection
     Dosage: 0.5 G, QD
     Dates: start: 20221111, end: 20221113
  4. LINEZOLID [Suspect]
     Active Substance: LINEZOLID
     Indication: Mycobacterium abscessus infection
     Dosage: 0.6 G, QD
     Dates: start: 20221111, end: 20221229
  5. LINEZOLID [Suspect]
     Active Substance: LINEZOLID
     Indication: Mycobacterium abscessus infection
     Dosage: 0.3 G, QD
     Dates: start: 20221230, end: 20230112
  6. CEFOXITIN [Suspect]
     Active Substance: CEFOXITIN SODIUM
     Indication: Mycobacterium abscessus infection
     Dosage: 2 G, TID
     Route: 042
     Dates: start: 20221111, end: 20221119
  7. MINOCYCLINE [Suspect]
     Active Substance: MINOCYCLINE HYDROCHLORIDE
     Indication: Mycobacterium abscessus infection
     Dosage: 100 MG, BID
     Dates: start: 20221111, end: 20221122
  8. AMIKACIN [Suspect]
     Active Substance: AMIKACIN
     Indication: Mycobacterium abscessus infection
     Dosage: 0.6 G, QD
     Dates: start: 20221114, end: 20221209
  9. CLARITHROMYCIN [Suspect]
     Active Substance: CLARITHROMYCIN
     Indication: Mycobacterium abscessus infection
     Dosage: 0.5 G, BID
     Dates: start: 20221123, end: 20230112
  10. CLARITHROMYCIN [Suspect]
     Active Substance: CLARITHROMYCIN
     Indication: Mycobacterium abscessus infection
     Dosage: 0.5 G, BID
     Dates: start: 20230129, end: 20230907
  11. CONTEZOLID [Concomitant]
     Active Substance: CONTEZOLID
     Indication: Mycobacterium abscessus infection
     Dosage: UNK
     Dates: start: 20230129, end: 20230907

REACTIONS (5)
  - Hepatotoxicity [Recovered/Resolved]
  - Neurotoxicity [Recovered/Resolved]
  - Tinnitus [Recovered/Resolved]
  - Off label use [None]
  - Drug effective for unapproved indication [None]

NARRATIVE: CASE EVENT DATE: 20220101
